FAERS Safety Report 8408100-6 (Version None)
Quarter: 2012Q2

REPORT INFORMATION
  Report Type: 
  Country: None (occurrence: None)
  Receive Date: 20120601
  Receipt Date: 20120601
  Transmission Date: 20120825
  Serious: Yes (Life-Threatening, Hospitalization, Disabling, Other)
  Sender: FDA-Public Use
  Company Number: None

PATIENT
  Sex: Male
  Weight: 46.2669 kg

DRUGS (1)
  1. ABILIFY [Suspect]
     Indication: HYPERSENSITIVITY
     Dosage: 1 TABLET EVERY MORNING  SEPT 15TH THRU

REACTIONS (1)
  - SUICIDE ATTEMPT [None]
